FAERS Safety Report 16624870 (Version 1)
Quarter: 2019Q3

REPORT INFORMATION
  Report Type: Spontaneous
  Country: BE (occurrence: BE)
  Receive Date: 20190724
  Receipt Date: 20190724
  Transmission Date: 20191004
  Serious: Yes (Other)
  Sender: FDA-Public Use
  Company Number: BE-BAYER-2019-135102

PATIENT
  Age: 40 Year
  Sex: Male

DRUGS (3)
  1. SORAFENIB (RAF KINASE INHIBITOR) [Suspect]
     Active Substance: SORAFENIB
     Indication: ADENOID CYSTIC CARCINOMA
     Dosage: 800 MG
  2. SORAFENIB (RAF KINASE INHIBITOR) [Suspect]
     Active Substance: SORAFENIB
     Indication: ADENOID CYSTIC CARCINOMA
     Dosage: 200 MG
  3. SORAFENIB (RAF KINASE INHIBITOR) [Suspect]
     Active Substance: SORAFENIB
     Indication: ADENOID CYSTIC CARCINOMA
     Dosage: 400 MG

REACTIONS (8)
  - Tooth extraction [None]
  - Adenoid cystic carcinoma [None]
  - Toxicity to various agents [None]
  - Pain [None]
  - Stomatitis [None]
  - Off label use [None]
  - Fatigue [None]
  - Product use in unapproved indication [None]
